FAERS Safety Report 12681889 (Version 3)
Quarter: 2016Q3

REPORT INFORMATION
  Report Type: Report from Study
  Country: CO (occurrence: CO)
  Receive Date: 20160824
  Receipt Date: 20160923
  Transmission Date: 20161109
  Serious: Yes (Hospitalization, Other)
  Sender: FDA-Public Use
  Company Number: CO-INCYTE CORPORATION-2016IN005077

PATIENT
  Age: 75 Year
  Sex: Male
  Weight: 55 kg

DRUGS (4)
  1. ENTEROGERMINA [Concomitant]
     Active Substance: BACILLUS SUBTILIS
     Indication: PRODUCT USED FOR UNKNOWN INDICATION
     Dosage: UNK
     Route: 065
  2. FERROUS SULFATE. [Concomitant]
     Active Substance: FERROUS SULFATE
     Indication: PRODUCT USED FOR UNKNOWN INDICATION
     Route: 065
  3. FOLIC ACID. [Concomitant]
     Active Substance: FOLIC ACID
     Indication: PRODUCT USED FOR UNKNOWN INDICATION
     Route: 065
  4. JAKAFI [Suspect]
     Active Substance: RUXOLITINIB
     Indication: PRIMARY MYELOFIBROSIS
     Dosage: 15 MG, Q12H
     Route: 048
     Dates: start: 20160706

REACTIONS (9)
  - Syncope [Unknown]
  - Fatigue [Unknown]
  - Decreased appetite [Unknown]
  - Platelet count decreased [Unknown]
  - Abasia [Unknown]
  - Diarrhoea [Unknown]
  - Depressed mood [Unknown]
  - General physical health deterioration [Unknown]
  - Vomiting [Unknown]

NARRATIVE: CASE EVENT DATE: 20160805
